FAERS Safety Report 24658780 (Version 1)
Quarter: 2024Q4

REPORT INFORMATION
  Report Type: Spontaneous
  Country: US (occurrence: None)
  Receive Date: 20241122
  Receipt Date: 20241122
  Transmission Date: 20250114
  Serious: Yes (Other)
  Sender: Public
  Company Number: None

PATIENT
  Age: 60 Year
  Sex: Male

DRUGS (1)
  1. STELARA [Suspect]
     Active Substance: USTEKINUMAB
     Indication: Colitis
     Dosage: 90MG EVERY 8 WEEKS SUBCUTANEOUS?
     Route: 058

REACTIONS (1)
  - Cardiac function test abnormal [None]

NARRATIVE: CASE EVENT DATE: 20241011
